FAERS Safety Report 4450537-4 (Version None)
Quarter: 2004Q3

REPORT INFORMATION
  Report Type: 
  Country: None (occurrence: None)
  Receive Date: 20040914
  Receipt Date: 20040830
  Transmission Date: 20050211
  Serious: Yes (Hospitalization)
  Sender: FDA-Public Use
  Company Number: 2004AP04601

PATIENT
  Age: 71 Year
  Sex: Female

DRUGS (9)
  1. ATENOLOL [Suspect]
     Indication: ILL-DEFINED DISORDER
     Dates: start: 20040501
  2. TIKOSYN [Suspect]
     Indication: ATRIAL FIBRILLATION
     Dosage: 250 UG BID
     Dates: start: 20040301
  3. NORVASC [Suspect]
     Indication: ILL-DEFINED DISORDER
     Dates: start: 20040501
  4. CAPTOPRIL [Suspect]
     Indication: ILL-DEFINED DISORDER
     Dates: start: 20040501
  5. LISINOPRIL [Concomitant]
  6. TOPROL-XL [Concomitant]
  7. LANSOPRAZOLE [Concomitant]
  8. XANAX [Concomitant]
  9. ACETYLSALICYLIC ACID [Concomitant]

REACTIONS (12)
  - ASTHENIA [None]
  - ATRIAL FIBRILLATION [None]
  - CHEST DISCOMFORT [None]
  - CHEST PAIN [None]
  - DIFFICULTY IN WALKING [None]
  - DIZZINESS [None]
  - DRUG INEFFECTIVE [None]
  - DYSSTASIA [None]
  - FEELING ABNORMAL [None]
  - HYPOTENSION [None]
  - TREMOR [None]
  - VERTIGO [None]
